FAERS Safety Report 13668312 (Version 1)
Quarter: 2017Q2

REPORT INFORMATION
  Report Type: Report from Study
  Country: NL (occurrence: NL)
  Receive Date: 20170620
  Receipt Date: 20170620
  Transmission Date: 20170830
  Serious: Yes (Hospitalization)
  Sender: FDA-Public Use
  Company Number: NL-ASTELLAS-2017US023871

PATIENT
  Age: 69 Year
  Sex: Male

DRUGS (4)
  1. ERLOTINIB [Suspect]
     Active Substance: ERLOTINIB
     Indication: EGFR GENE MUTATION
  2. DOCETAXEL. [Suspect]
     Active Substance: DOCETAXEL
     Indication: NEOPLASM MALIGNANT
     Route: 042
     Dates: start: 20170414
  3. DOCETAXEL. [Suspect]
     Active Substance: DOCETAXEL
     Indication: EGFR GENE MUTATION
  4. ERLOTINIB [Suspect]
     Active Substance: ERLOTINIB
     Indication: NEOPLASM MALIGNANT
     Dosage: 150 MG, DAILY ONCE ON DAY 2-16, EVERY 3 WEEKS
     Route: 048
     Dates: start: 20170415

REACTIONS (1)
  - Dysphagia [Unknown]

NARRATIVE: CASE EVENT DATE: 20170612
